FAERS Safety Report 21155252 (Version 2)
Quarter: 2022Q3

REPORT INFORMATION
  Report Type: Spontaneous
  Country: US (occurrence: US)
  Receive Date: 20220801
  Receipt Date: 20220817
  Transmission Date: 20221027
  Serious: No
  Sender: FDA-Public Use
  Company Number: US-GSK-US2022AMR111130

PATIENT
  Sex: Female
  Weight: 74.39 kg

DRUGS (5)
  1. ALBUTEROL SULFATE [Suspect]
     Active Substance: ALBUTEROL SULFATE
     Indication: Product used for unknown indication
     Dosage: UNK
  2. IBUPROFEN [Concomitant]
     Active Substance: IBUPROFEN
     Indication: Myalgia
     Dosage: UNK
  3. LIDOCAINE [Concomitant]
     Active Substance: LIDOCAINE
     Indication: Pharyngeal swelling
     Dosage: UNK
  4. AMIODARONE [Concomitant]
     Active Substance: AMIODARONE
     Indication: Product used for unknown indication
     Dosage: UNK
  5. LEVOTHYROXINE [Concomitant]
     Active Substance: LEVOTHYROXINE
     Indication: Product used for unknown indication
     Dosage: UNK

REACTIONS (1)
  - No adverse event [Unknown]
